FAERS Safety Report 8606611-1 (Version None)
Quarter: 2012Q3

REPORT INFORMATION
  Report Type: 
  Country: None (occurrence: None)
  Receive Date: 20120820
  Receipt Date: 20120813
  Transmission Date: 20120928
  Serious: Yes (Other)
  Sender: FDA-Public Use
  Company Number: PHFR2012GB003972

PATIENT
  Sex: Female

DRUGS (6)
  1. CLOZARIL [Suspect]
     Dosage: 450 MG, DAILY
     Route: 048
  2. VENLAFAXINE [Suspect]
     Indication: DEPRESSED MOOD
     Dosage: 150 MG, DAILY
     Route: 048
  3. HYOSCINE HYDROBROMIDE [Suspect]
     Dosage: 600 UG,DAILY
     Route: 048
  4. CLOZARIL [Suspect]
     Indication: SCHIZOPHRENIA
     Route: 048
     Dates: start: 20111118
  5. RISPERIDONE [Suspect]
     Indication: SCHIZOPHRENIA
     Dosage: 2 MG, DAILY
     Route: 048
  6. MIRTAZAPINE [Concomitant]
     Indication: DEPRESSED MOOD
     Dosage: 45 MG, DAILY
     Route: 048

REACTIONS (3)
  - ANXIETY [None]
  - TACHYCARDIA [None]
  - THERAPY RESPONDER [None]
